FAERS Safety Report 10041846 (Version 2)
Quarter: 2014Q2

REPORT INFORMATION
  Report Type: Spontaneous
  Country: US (occurrence: US)
  Receive Date: 20140327
  Receipt Date: 20140404
  Transmission Date: 20141212
  Serious: Yes (Hospitalization, Other)
  Sender: FDA-Public Use
  Company Number: US-BAXTER-2014BAX015166

PATIENT
  Sex: Male

DRUGS (2)
  1. DIANEAL LOW CALCIUM [Suspect]
     Indication: PERITONEAL DIALYSIS
     Route: 033
     Dates: end: 201403
  2. DIANEAL LOW CALCIUM [Suspect]
     Route: 033

REACTIONS (5)
  - Blood count abnormal [Recovering/Resolving]
  - Cholecystitis infective [Recovering/Resolving]
  - Haemoglobin decreased [Unknown]
  - Blood urea abnormal [Unknown]
  - Peritonitis [Recovering/Resolving]
